FAERS Safety Report 21919369 (Version 1)
Quarter: 2023Q1

REPORT INFORMATION
  Report Type: Spontaneous
  Country: US (occurrence: US)
  Receive Date: 20230127
  Receipt Date: 20230127
  Transmission Date: 20230418
  Serious: Yes (Death, Life-Threatening, Hospitalization, Other)
  Sender: FDA-Public Use
  Company Number: US-drreddys-SPO/USA/23/0160276

PATIENT
  Age: 15 Year
  Sex: Female

DRUGS (10)
  1. TACROLIMUS [Suspect]
     Active Substance: TACROLIMUS
     Indication: Immunosuppressant drug therapy
  2. DECITABINE [Suspect]
     Active Substance: DECITABINE
     Indication: Chloroma
  3. SIROLIMUS [Suspect]
     Active Substance: SIROLIMUS
     Indication: Immunosuppressant drug therapy
  4. PREDNISONE [Suspect]
     Active Substance: PREDNISONE
     Indication: Immunosuppressant drug therapy
  5. EVEROLIMUS [Suspect]
     Active Substance: EVEROLIMUS
     Indication: Immunosuppressant drug therapy
  6. RITUXIMAB [Suspect]
     Active Substance: RITUXIMAB
     Indication: Glomerulonephritis membranoproliferative
     Dosage: AT THE AGE OF 20, 18 MONTHS, ANOTHER DOSE
  7. RITUXIMAB [Suspect]
     Active Substance: RITUXIMAB
     Dosage: ONE DOSE AT THE AGE OF 19
  8. HUMAN IMMUNOGLOBULIN G [Suspect]
     Active Substance: HUMAN IMMUNOGLOBULIN G
     Indication: Product used for unknown indication
     Dosage: THREE DOSES
     Route: 042
  9. VENETOCLAX [Suspect]
     Active Substance: VENETOCLAX
     Indication: Chloroma
  10. MYCOPHENOLATE MOFETIL [Suspect]
     Active Substance: MYCOPHENOLATE MOFETIL
     Indication: Immunosuppressant drug therapy

REACTIONS (8)
  - Soft tissue sarcoma [Fatal]
  - Acute respiratory distress syndrome [Fatal]
  - Pneumonia [Fatal]
  - Pneumothorax [Fatal]
  - Cardiac arrest [Fatal]
  - Pulmonary haemorrhage [Fatal]
  - Disease progression [Fatal]
  - Epstein-Barr virus infection [Fatal]
